FAERS Safety Report 4607813-1 (Version None)
Quarter: 2005Q1

REPORT INFORMATION
  Report Type: 
  Country: None (occurrence: None)
  Receive Date: 20050310
  Receipt Date: 20050301
  Transmission Date: 20050727
  Serious: Yes (Life-Threatening, Hospitalization, Disabling, Other)
  Sender: FDA-Public Use
  Company Number: HQWYE799603MAR05

PATIENT
  Sex: Male

DRUGS (5)
  1. ADVIL [Suspect]
     Indication: ANGINA PECTORIS
     Dosage: 3 TABLETS DAILY; ORAL
     Route: 048
     Dates: start: 20050101, end: 20050101
  2. ADVIL [Suspect]
     Indication: ANGINA PECTORIS
     Dosage: 3 TABLETS DAILY; ORAL
     Route: 048
     Dates: start: 20050101, end: 20050101
  3. ADVIL [Suspect]
     Dosage: ORAL
     Route: 048
  4. DOLIPRANE             (PARACETAMOL) [Concomitant]
  5. .... [Concomitant]

REACTIONS (5)
  - APHTHOUS STOMATITIS [None]
  - ARTERIAL RUPTURE [None]
  - EPISTAXIS [None]
  - GINGIVITIS [None]
  - GLOSSITIS [None]
